FAERS Safety Report 9075173 (Version 2)
Quarter: 2013Q2

REPORT INFORMATION
  Report Type: Spontaneous
  Country: US (occurrence: US)
  Receive Date: 20130129
  Receipt Date: 20130404
  Transmission Date: 20140414
  Serious: No
  Sender: FDA-Public Use
  Company Number: US-B.I. PHARMACEUTICALS,INC./RIDGEFIELD-2013-BI-02288BP

PATIENT
  Age: 91 Year
  Sex: Female
  Weight: 57 kg

DRUGS (2)
  1. COMBIVENT [Suspect]
     Indication: CHRONIC OBSTRUCTIVE PULMONARY DISEASE
     Route: 055
     Dates: start: 2007
  2. SPIRIVA [Suspect]
     Indication: CHRONIC OBSTRUCTIVE PULMONARY DISEASE
     Dosage: 18 MCG
     Route: 055
     Dates: start: 20121226, end: 20130108

REACTIONS (6)
  - Throat irritation [Recovered/Resolved]
  - Swollen tongue [Recovered/Resolved]
  - Pharyngeal oedema [Recovered/Resolved]
  - Laryngeal oedema [Recovered/Resolved]
  - Speech disorder [Recovered/Resolved]
  - Memory impairment [Not Recovered/Not Resolved]
